FAERS Safety Report 14080516 (Version 1)
Quarter: 2017Q4

REPORT INFORMATION
  Report Type: Spontaneous
  Country: US (occurrence: US)
  Receive Date: 20171012
  Receipt Date: 20171012
  Transmission Date: 20180321
  Serious: No
  Sender: FDA-Public Use
  Company Number: US-MYLANLABS-2017M1036935

PATIENT
  Sex: Female
  Weight: 54 kg

DRUGS (1)
  1. ALPRAZOLAM TABLETS, USP [Suspect]
     Active Substance: ALPRAZOLAM
     Indication: PRODUCT USED FOR UNKNOWN INDICATION
     Dosage: 1 MG, QID
     Route: 048
     Dates: end: 201706

REACTIONS (3)
  - Aggression [Recovered/Resolved]
  - Stupor [Recovered/Resolved]
  - Nausea [Recovered/Resolved]
